FAERS Safety Report 5226603-2 (Version None)
Quarter: 2007Q1

REPORT INFORMATION
  Report Type: 
  Country: None (occurrence: None)
  Receive Date: 20070201
  Receipt Date: 20070123
  Transmission Date: 20070707
  Serious: Yes (Hospitalization)
  Sender: FDA-Public Use
  Company Number: FR-PFIZER INC-2007006947

PATIENT
  Age: 69 Year
  Sex: Male
  Weight: 74 kg

DRUGS (5)
  1. FRAGMIN [Suspect]
     Indication: ARTERIAL THROMBOSIS
     Route: 058
     Dates: start: 20061030, end: 20061116
  2. FRAGMIN [Suspect]
     Indication: EMBOLISM
  3. ACETAMINOPHEN [Concomitant]
     Dosage: FREQ:2 DF FOUR TIMES
     Route: 048
  4. ZOPICLONE [Concomitant]
     Dosage: TEXT:1 DF-FREQ:QD
     Route: 048
  5. DIACEREIN [Concomitant]
     Dosage: FREQ:2DF BID
     Route: 048

REACTIONS (1)
  - PHLEBITIS [None]
